FAERS Safety Report 8214851-9 (Version None)
Quarter: 2012Q1

REPORT INFORMATION
  Report Type: 
  Country: None (occurrence: None)
  Receive Date: 20120316
  Receipt Date: 20120305
  Transmission Date: 20120608
  Serious: Yes (Other)
  Sender: FDA-Public Use
  Company Number: US-ELI_LILLY_AND_COMPANY-US201112002956

PATIENT
  Sex: Female

DRUGS (1)
  1. FORTEO [Suspect]
     Indication: OSTEOPOROSIS
     Dosage: 20 UG, QD
     Route: 065
     Dates: start: 20110803, end: 20111101

REACTIONS (9)
  - OXYGEN SUPPLEMENTATION [None]
  - ARTHRALGIA [None]
  - PAIN IN EXTREMITY [None]
  - CARDIAC DISORDER [None]
  - MOVEMENT DISORDER [None]
  - LOWER LIMB FRACTURE [None]
  - BACK PAIN [None]
  - PAIN [None]
  - BLOOD CALCIUM ABNORMAL [None]
